FAERS Safety Report 22043877 (Version 1)
Quarter: 2023Q1

REPORT INFORMATION
  Report Type: Report from Study
  Country: US (occurrence: US)
  Receive Date: 20230228
  Receipt Date: 20230228
  Transmission Date: 20230418
  Serious: Yes (Hospitalization, Other)
  Sender: FDA-Public Use
  Company Number: US-UCBSA-2022072413

PATIENT
  Age: 84 Year
  Sex: Female

DRUGS (10)
  1. VIMPAT [Suspect]
     Active Substance: LACOSAMIDE
     Indication: Seizure
     Dosage: 250 MILLIGRAM
  2. KEPPRA [Suspect]
     Active Substance: LEVETIRACETAM
     Indication: Seizure
     Dosage: 250 MILLIGRAM, 2X/DAY (BID)
     Dates: start: 20221014
  3. BRIVIACT [Suspect]
     Active Substance: BRIVARACETAM
     Indication: Seizure
     Dosage: 100 MILLIGRAM, ONCE DAILY (QD)
     Route: 048
  4. ESLICARBAZEPINE [Suspect]
     Active Substance: ESLICARBAZEPINE
     Indication: Seizure
     Dosage: 200 MILLIGRAM, 2X/2 WEEKS
     Dates: start: 20221214
  5. ESLICARBAZEPINE [Suspect]
     Active Substance: ESLICARBAZEPINE
     Dosage: 1 TABLET IN PM FOR TWO WEEKS THEN 2 TABLETS FOR TWO WEEKS THEN 3 TABLETS NIGHTLY
     Dates: start: 20221214
  6. ESLICARBAZEPINE [Suspect]
     Active Substance: ESLICARBAZEPINE
     Dosage: 1 TABLET IN PM FOR TWO WEEKS THEN 2 TABLETS FOR TWO WEEKS THEN 3 TABLETS NIGHTLY
     Dates: start: 20221214
  7. ESLICARBAZEPINE [Suspect]
     Active Substance: ESLICARBAZEPINE
     Dosage: 1 TABLET IN PM FOR TWO WEEKS THEN 2 TABLETS FOR TWO WEEKS THEN 3 TABLETS NIGHTLY
     Dates: start: 20221214
  8. CLONAZEPAM [Suspect]
     Active Substance: CLONAZEPAM
     Indication: Partial seizures
     Dosage: 0.5 MILLIGRAM, 2X/DAY (BID) (TAKE 1 TABLET (0.5 MG TOTAL) 2 (TWO) TIMES A DAY IF NEEDED FOR SEIZURES
     Route: 048
     Dates: start: 20221209
  9. SEROQUEL [Concomitant]
     Active Substance: QUETIAPINE FUMARATE
     Indication: Behaviour disorder
     Dosage: 25 MILLIGRAM, ONCE DAILY (QD)
     Route: 048
  10. SEROQUEL [Concomitant]
     Active Substance: QUETIAPINE FUMARATE
     Indication: Insomnia

REACTIONS (7)
  - Seizure [Recovered/Resolved]
  - Anger [Not Recovered/Not Resolved]
  - Fatigue [Unknown]
  - Dizziness [Unknown]
  - Mood swings [Not Recovered/Not Resolved]
  - Memory impairment [Not Recovered/Not Resolved]
  - Inappropriate schedule of product administration [Unknown]

NARRATIVE: CASE EVENT DATE: 20220901
